FAERS Safety Report 4682299-X (Version None)
Quarter: 2005Q2

REPORT INFORMATION
  Report Type: 
  Country: None (occurrence: None)
  Receive Date: 20050606
  Receipt Date: 20050525
  Transmission Date: 20051028
  Serious: Yes (Other)
  Sender: FDA-Public Use
  Company Number: US-JNJFOC-20050600733

PATIENT
  Age: 25 Year
  Sex: Female
  Weight: 56.7 kg

DRUGS (1)
  1. TRINESSA [Suspect]
     Indication: CONTRACEPTION
     Route: 049
     Dates: start: 20040701, end: 20050524

REACTIONS (5)
  - CONVULSION [None]
  - HEADACHE [None]
  - HEMIPARESIS [None]
  - LOSS OF CONSCIOUSNESS [None]
  - TREMOR [None]
